FAERS Safety Report 4937366-X (Version None)
Quarter: 2006Q1

REPORT INFORMATION
  Report Type: 
  Country: None (occurrence: None)
  Receive Date: 20060302
  Receipt Date: 20060216
  Transmission Date: 20060701
  Serious: Yes (Other)
  Sender: FDA-Public Use
  Company Number: IE200602003212

PATIENT
  Sex: Female

DRUGS (1)
  1. DISTACLOR (CEFACLOR UNKNOWN MANFACTURER) [Suspect]
     Dates: end: 20051001

REACTIONS (14)
  - ABASIA [None]
  - ANAPHYLACTIC REACTION [None]
  - FEELING COLD [None]
  - FORMICATION [None]
  - MALAISE [None]
  - MULTI-ORGAN DISORDER [None]
  - OEDEMA PERIPHERAL [None]
  - PERIORBITAL DISORDER [None]
  - PRURITUS GENERALISED [None]
  - SCRATCH [None]
  - SYNCOPE [None]
  - THROAT TIGHTNESS [None]
  - URTICARIA [None]
  - VOMITING [None]
